FAERS Safety Report 18343021 (Version 1)
Quarter: 2020Q4

REPORT INFORMATION
  Report Type: Spontaneous
  Country: US (occurrence: US)
  Receive Date: 20201002
  Receipt Date: 20201002
  Transmission Date: 20210113
  Serious: Yes (Disabling)
  Sender: FDA-Public Use
  Company Number: None

PATIENT
  Age: 49 Year
  Sex: Female
  Weight: 118.35 kg

DRUGS (3)
  1. CAMILLA PROGESTERONE PILL [Concomitant]
  2. XARELTO [Suspect]
     Active Substance: RIVAROXABAN
     Indication: DEEP VEIN THROMBOSIS
     Dosage: ?          QUANTITY:1 TABLET(S);?
     Route: 048
     Dates: start: 20200821, end: 20200930
  3. LEVOTHYROXINE. [Concomitant]
     Active Substance: LEVOTHYROXINE

REACTIONS (7)
  - Pain in extremity [None]
  - Impaired self-care [None]
  - Arthritis [None]
  - Myalgia [None]
  - Arthralgia [None]
  - Back pain [None]
  - Muscular weakness [None]

NARRATIVE: CASE EVENT DATE: 20200930
